FAERS Safety Report 9671657 (Version 2)
Quarter: 2013Q4

REPORT INFORMATION
  Report Type: Spontaneous
  Country: US (occurrence: US)
  Receive Date: 20131106
  Receipt Date: 20131213
  Transmission Date: 20140711
  Serious: No
  Sender: FDA-Public Use
  Company Number: US-PFIZER INC-2013314474

PATIENT
  Sex: Female

DRUGS (1)
  1. QUINAPRIL HCL [Suspect]
     Indication: HYPERTENSION
     Dosage: UNK

REACTIONS (3)
  - Drug intolerance [Unknown]
  - Reaction to drug excipients [Unknown]
  - Dyspnoea [Unknown]
